FAERS Safety Report 12228168 (Version 1)
Quarter: 2016Q1

REPORT INFORMATION
  Report Type: Spontaneous
  Country: US (occurrence: None)
  Receive Date: 20160330
  Receipt Date: 20160330
  Transmission Date: 20160526
  Serious: Yes (Other)
  Sender: FDA-Public Use
  Company Number: None

PATIENT
  Age: 64 Year
  Sex: Female
  Weight: 73.94 kg

DRUGS (10)
  1. SYNTHROID [Concomitant]
     Active Substance: LEVOTHYROXINE SODIUM
  2. SOOLANTRA [Suspect]
     Active Substance: IVERMECTIN
     Indication: ROSACEA
     Dosage: DAILY ON FACIAL SKIN
     Route: 061
     Dates: start: 20160320, end: 20160321
  3. MAGNESIUM [Concomitant]
     Active Substance: MAGNESIUM
  4. PROBIOTICS [Concomitant]
     Active Substance: PROBIOTICS NOS
  5. SOOLANTRA [Suspect]
     Active Substance: IVERMECTIN
     Indication: RASH
     Dosage: DAILY ON FACIAL SKIN
     Route: 061
     Dates: start: 20160320, end: 20160321
  6. VITAMINS [Concomitant]
     Active Substance: VITAMINS
  7. CALCIUM [Concomitant]
     Active Substance: CALCIUM
  8. OMNARIS [Concomitant]
     Active Substance: CICLESONIDE
  9. ^ACTIFIED^ ALLERGY PILLS [Concomitant]
  10. VITAMIN D [Concomitant]
     Active Substance: CHOLECALCIFEROL

REACTIONS (2)
  - Reaction to drug excipients [None]
  - Hypersensitivity [None]

NARRATIVE: CASE EVENT DATE: 20160321
